FAERS Safety Report 8073588-X (Version None)
Quarter: 2012Q1

REPORT INFORMATION
  Report Type: 
  Country: None (occurrence: None)
  Receive Date: 20120126
  Receipt Date: 20120120
  Transmission Date: 20120608
  Serious: Yes (Hospitalization, Other)
  Sender: FDA-Public Use
  Company Number: MX-ABBOTT-12P-107-0892360-00

PATIENT
  Sex: Female
  Weight: 47 kg

DRUGS (2)
  1. HUMIRA [Suspect]
     Indication: SPONDYLITIS
     Route: 058
     Dates: start: 20110601, end: 20111019
  2. METHOTREXATE [Concomitant]
     Indication: PRODUCT USED FOR UNKNOWN INDICATION
     Dosage: 3 TAB ON SAT AND 3 TAB ON SUNDAY: WEEKLY
     Dates: start: 20110401, end: 20110901

REACTIONS (4)
  - MALAISE [None]
  - HERPES VIRUS INFECTION [None]
  - TUBERCULOSIS [None]
  - LUNG DISORDER [None]
